FAERS Safety Report 22067123 (Version 1)
Quarter: 2023Q1

REPORT INFORMATION
  Report Type: Report from Study
  Country: US (occurrence: US)
  Receive Date: 20230307
  Receipt Date: 20230307
  Transmission Date: 20230417
  Serious: Yes (Other)
  Sender: FDA-Public Use
  Company Number: US-ABBVIE-4329744

PATIENT
  Sex: Female

DRUGS (1)
  1. HUMIRA [Suspect]
     Active Substance: ADALIMUMAB
     Indication: Rheumatoid arthritis
     Dosage: CITRATE FREE?FORM STRENGTH 40 MILLIGRAMS
     Route: 058
     Dates: start: 20130101

REACTIONS (6)
  - Internal haemorrhage [Unknown]
  - Foot operation [Unknown]
  - Cataract [Unknown]
  - Blood urine present [Unknown]
  - Post procedural infection [Recovering/Resolving]
  - Contusion [Unknown]
